FAERS Safety Report 5884072-3 (Version None)
Quarter: 2008Q3

REPORT INFORMATION
  Report Type: 
  Country: None (occurrence: None)
  Receive Date: 20080911
  Receipt Date: 20080903
  Transmission Date: 20090109
  Serious: Yes (Hospitalization)
  Sender: FDA-Public Use
  Company Number: LTI2008A00254

PATIENT
  Age: 54 Year
  Sex: Female

DRUGS (4)
  1. ACTOS [Suspect]
     Indication: TYPE 2 DIABETES MELLITUS
     Dosage: 1 TAB. (1 TAB., 1 IN 1 D) ORAL
     Route: 048
     Dates: start: 20060101, end: 20080415
  2. GLUCOPHAGE [Concomitant]
  3. RAMIPRIL [Concomitant]
  4. ATORVASTATIN CALCIUM [Concomitant]

REACTIONS (4)
  - DYSAESTHESIA [None]
  - LEUKOCYTOSIS [None]
  - LUMBAR SPINAL STENOSIS [None]
  - PARAESTHESIA [None]
